FAERS Safety Report 17672657 (Version 7)
Quarter: 2020Q4

REPORT INFORMATION
  Report Type: Spontaneous
  Country: NZ (occurrence: NZ)
  Receive Date: 20200415
  Receipt Date: 20201118
  Transmission Date: 20210113
  Serious: Yes (Hospitalization, Other)
  Sender: FDA-Public Use
  Company Number: NZ-MYLANLABS-2020M1038313

PATIENT
  Age: 43 Year
  Sex: Female

DRUGS (1)
  1. CLOZARIL [Suspect]
     Active Substance: CLOZAPINE
     Indication: SCHIZOPHRENIA
     Dosage: UNK
     Route: 048
     Dates: start: 20170203

REACTIONS (4)
  - Mean cell haemoglobin concentration decreased [Not Recovered/Not Resolved]
  - Schizophrenia [Unknown]
  - Mental impairment [Unknown]
  - Mean cell haemoglobin decreased [Recovering/Resolving]

NARRATIVE: CASE EVENT DATE: 20200421
